FAERS Safety Report 7333913-1 (Version None)
Quarter: 2011Q1

REPORT INFORMATION
  Report Type: 
  Country: None (occurrence: None)
  Receive Date: 20110307
  Receipt Date: 20110223
  Transmission Date: 20110831
  Serious: Yes (Hospitalization)
  Sender: FDA-Public Use
  Company Number: US-BIOGENIDEC-2010BI044301

PATIENT
  Age: 69 Year
  Sex: Female

DRUGS (1)
  1. AVONEX [Suspect]
     Indication: MULTIPLE SCLEROSIS
     Route: 030
     Dates: start: 20020227

REACTIONS (5)
  - MULTIPLE SCLEROSIS [None]
  - ABDOMINAL PAIN [None]
  - PANCREATITIS [None]
  - PANCREATOLITHIASIS [None]
  - IATROGENIC INJURY [None]
